FAERS Safety Report 16336821 (Version 1)
Quarter: 2019Q2

REPORT INFORMATION
  Report Type: Spontaneous
  Country: DE (occurrence: DE)
  Receive Date: 20190521
  Receipt Date: 20190521
  Transmission Date: 20190711
  Serious: Yes (Other)
  Sender: FDA-Public Use
  Company Number: DE-TORRENT-00013859

PATIENT
  Age: 39 Year
  Sex: Female
  Weight: 58 kg

DRUGS (1)
  1. LEVOFLOXACIN. [Suspect]
     Active Substance: LEVOFLOXACIN
     Indication: NASOPHARYNGITIS
     Dosage: 1 X 500  MG /TAG
     Route: 048
     Dates: start: 20171018, end: 20171022

REACTIONS (14)
  - Diarrhoea [Recovered/Resolved]
  - Tendon pain [Recovering/Resolving]
  - Quality of life decreased [Recovering/Resolving]
  - Tinnitus [Recovering/Resolving]
  - Neuropathy peripheral [Recovered/Resolved]
  - Myalgia [Recovering/Resolving]
  - Feeling abnormal [Recovering/Resolving]
  - Weight decreased [Recovering/Resolving]
  - Paraesthesia [Recovering/Resolving]
  - Visual impairment [Recovering/Resolving]
  - Hypoaesthesia [Recovering/Resolving]
  - Ocular hyperaemia [Recovering/Resolving]
  - Tremor [Unknown]
  - Insomnia [Recovered/Resolved]

NARRATIVE: CASE EVENT DATE: 20171022
